FAERS Safety Report 18987664 (Version 14)
Quarter: 2021Q3

REPORT INFORMATION
  Report Type: Spontaneous
  Country: GB (occurrence: GB)
  Receive Date: 20210309
  Receipt Date: 20210830
  Transmission Date: 20211014
  Serious: Yes (Death, Life-Threatening, Hospitalization, Other)
  Sender: FDA-Public Use
  Company Number: GB-ORGANON-1811GBR001734

PATIENT
  Age: 47 Year
  Sex: Female

DRUGS (42)
  1. HUMALOG MIX [Suspect]
     Active Substance: INSULIN LISPRO
     Dosage: 120 IU, TID,60 IU ALSO RECEIVED
     Route: 048
  2. LANSOPRAZOLE. [Suspect]
     Active Substance: LANSOPRAZOLE
     Indication: BLOOD CHOLESTEROL INCREASED
     Dosage: 30 MILLIGRAM, QD (30 MG, QD ); 30 MG, OD, (EVERY 1 DAY)
     Route: 065
     Dates: end: 20180928
  3. HUMALOG MIX50/50 [Suspect]
     Active Substance: INSULIN LISPRO
     Indication: DIABETES MELLITUS
     Dosage: 120 IU, TID,60 IU ALSO RECEIVED
     Route: 048
     Dates: end: 20180928
  4. EZETIMIBE. [Suspect]
     Active Substance: EZETIMIBE
     Dosage: 10 MILLIGRAM, DAILY, (10 MG, QD)
     Route: 048
     Dates: end: 20180928
  5. CLOZARIL [Suspect]
     Active Substance: CLOZAPINE
     Indication: BLOOD CHOLESTEROL INCREASED
     Dosage: 58000 MILLIGRAM
     Route: 065
  6. CLOZARIL [Suspect]
     Active Substance: CLOZAPINE
     Dosage: 10 MILLIGRAM, QD
     Route: 048
     Dates: end: 20180928
  7. SERTRALINE HYDROCHLORIDE. [Suspect]
     Active Substance: SERTRALINE HYDROCHLORIDE
     Indication: DEPRESSION
     Dosage: 50 MILLIGRAM, DAILY: 50 MG, QD, AM; 50 MG, QD
     Route: 048
     Dates: start: 201709, end: 20180928
  8. HUMALOG MIX50/50 [Suspect]
     Active Substance: INSULIN LISPRO
     Dosage: 60 IU, TID (180 INTERNATIONAL UNIT, QD)
     Route: 048
     Dates: end: 20180928
  9. HUMALOG MIX [Suspect]
     Active Substance: INSULIN LISPRO
     Dosage: 120 INTERNATIONAL UNITS, TID
     Dates: end: 20180928
  10. HUMALOG MIX [Suspect]
     Active Substance: INSULIN LISPRO
     Dosage: 60 IU, TID
     Route: 048
     Dates: end: 20180928
  11. HUMALOG MIX [Suspect]
     Active Substance: INSULIN LISPRO
     Dosage: 180 IU, QD (60 IU, TID)
     Route: 048
     Dates: end: 20180928
  12. PRAVASTATIN. [Suspect]
     Active Substance: PRAVASTATIN
     Indication: BLOOD CHOLESTEROL INCREASED
     Dosage: 40 MILLIGRAM
     Route: 048
  13. PRAVASTATIN. [Suspect]
     Active Substance: PRAVASTATIN
     Dosage: 40 MG, PM, QHS
     Route: 048
  14. LANSOPRAZOLE. [Suspect]
     Active Substance: LANSOPRAZOLE
     Indication: GASTROOESOPHAGEAL REFLUX DISEASE
     Dosage: 30 MILLIGRAM DAILY; 30 MG, AM, QD
     Route: 065
     Dates: end: 20180928
  15. LANSOPRAZOLE. [Suspect]
     Active Substance: LANSOPRAZOLE
     Dosage: 40 MILLIGRAM, QD
     Route: 048
  16. FELODIPINE. [Suspect]
     Active Substance: FELODIPINE
     Indication: HYPERTENSION
     Dosage: 10 MILLIGRAM, ONCE A DAY, (10 MG QD)
     Route: 048
     Dates: end: 20180928
  17. AMLODIPINE [Suspect]
     Active Substance: AMLODIPINE BESYLATE
     Indication: HYPERTENSION
     Dosage: 100 MILLIGRAM, ONCE A DAY (100 MG, QD)
     Route: 048
     Dates: start: 20180928, end: 20180928
  18. HUMALOG MIX50/50 [Suspect]
     Active Substance: INSULIN LISPRO
     Dosage: UNK
     Route: 065
  19. HUMALOG MIX [Suspect]
     Active Substance: INSULIN LISPRO
     Indication: DIABETES MELLITUS
     Dosage: 60 INTERNATIONAL UNIT, TID
     Route: 048
     Dates: end: 20180928
  20. PRAVASTATIN. [Suspect]
     Active Substance: PRAVASTATIN
     Dosage: 40 MG, OD,(EVERY 1 DAY)
     Route: 048
  21. LOSARTAN POTASSIUM. [Suspect]
     Active Substance: LOSARTAN POTASSIUM
     Indication: SCHIZOPHRENIA
     Dosage: 200 MILLIGRAM, OD, (EVERY 1 DAY)
     Route: 048
     Dates: start: 20170317, end: 20180928
  22. EZETIMIBE. [Suspect]
     Active Substance: EZETIMIBE
     Dosage: 10 MILLIGRAM, DAILY, (10 MG, QD)
     Route: 048
     Dates: end: 20180928
  23. HUMALOG MIX [Suspect]
     Active Substance: INSULIN LISPRO
     Dosage: 120 INTERNATIONAL UNIT, TID
     Route: 048
     Dates: end: 20180928
  24. HUMALOG MIX [Suspect]
     Active Substance: INSULIN LISPRO
     Dosage: 360 IU, QD
     Route: 048
  25. HUMALOG MIX [Suspect]
     Active Substance: INSULIN LISPRO
     Dosage: 360 IU, QD (120 IU, TID)
     Route: 048
     Dates: end: 20180928
  26. CLOZARIL [Suspect]
     Active Substance: CLOZAPINE
     Indication: SCHIZOPHRENIA
     Dosage: 200 MILLIGRAM, DAILY (QD) , 200 MG, QD (PM, 1 DAY); 200 MG, OD, (EVERY 1 DAY)
     Route: 048
     Dates: start: 20170317, end: 20180928
  27. CLOZAPINE. [Suspect]
     Active Substance: CLOZAPINE
     Indication: SCHIZOPHRENIA
     Dosage: 200 MG, QD
     Route: 048
     Dates: start: 20170317, end: 20180928
  28. LOSARTAN POTASSIUM. [Suspect]
     Active Substance: LOSARTAN POTASSIUM
     Indication: HYPERTENSION
     Dosage: 100 MILLIGRAM, DAILY; 100 MG, QD
     Route: 048
     Dates: end: 20180928
  29. HUMALOG MIX [Suspect]
     Active Substance: INSULIN LISPRO
     Dosage: 120 IU, TID
     Route: 048
     Dates: end: 20180928
  30. HUMALOG MIX [Suspect]
     Active Substance: INSULIN LISPRO
     Dosage: 60 IU, TID (180 INTERNATIONAL UNIT, QD)
     Route: 048
     Dates: end: 20180928
  31. PRAVASTATIN. [Suspect]
     Active Substance: PRAVASTATIN
     Dosage: 40 MILLIGRAM (40 MG, PM, QHS)
     Route: 048
  32. HUMALOG MIX50/50 [Suspect]
     Active Substance: INSULIN LISPRO
     Dosage: 360 IU, QD (120 IU, TID)
     Route: 048
     Dates: end: 20180928
  33. HUMALOG MIX50/50 [Suspect]
     Active Substance: INSULIN LISPRO
     Dosage: 120 IU, TID (360 INTERNATIONAL UNIT, QD)
     Route: 048
     Dates: end: 20180928
  34. HUMALOG MIX50/50 [Suspect]
     Active Substance: INSULIN LISPRO
     Dosage: 360 INTERNATIONAL UNIT, QD (360 IU, QD)
     Route: 048
     Dates: end: 20180928
  35. EZETIMIBE. [Suspect]
     Active Substance: EZETIMIBE
     Indication: BLOOD CHOLESTEROL INCREASED
     Dosage: 10 MILLIGRAM, DAILY, (10 MG, QD)
     Route: 048
     Dates: end: 20180928
  36. HUMALOG MIX [Suspect]
     Active Substance: INSULIN LISPRO
     Dosage: 120 INTERNATIONAL UNIT, TID
     Route: 048
     Dates: end: 20180928
  37. PRAVASTATIN. [Suspect]
     Active Substance: PRAVASTATIN
     Indication: DEPRESSION
     Dosage: 40 MILLIGRAM, QD (40 MG, PM, QHS, UNIT DOSE: 40 MG)
     Route: 048
  38. PRAVASTATIN. [Suspect]
     Active Substance: PRAVASTATIN
     Dosage: 50 MILLIGRAM, QD (SODIUM SALT OF PRAVASTATIN)
     Route: 048
     Dates: start: 201709
  39. CLOZAPINE. [Suspect]
     Active Substance: CLOZAPINE
     Indication: PRODUCT USED FOR UNKNOWN INDICATION
     Dosage: 200 MILLIGRAM, QD (PM)
     Route: 048
     Dates: start: 20170317, end: 20180928
  40. HUMALOG MIX50/50 [Suspect]
     Active Substance: INSULIN LISPRO
     Dosage: 60 IU, TID
     Route: 048
     Dates: end: 20180928
  41. HUMALOG MIX50/50 [Suspect]
     Active Substance: INSULIN LISPRO
     Dosage: 120 IU, TID,60 IU ALSO RECEIVED
     Dates: end: 20180928
  42. HUMALOG MIX50/50 [Suspect]
     Active Substance: INSULIN LISPRO
     Dosage: 180 INTERNATIONAL UNIT, QD (60 IU, TID)
     Route: 048
     Dates: end: 20180928

REACTIONS (4)
  - Pneumonia [Fatal]
  - Incorrect route of product administration [Fatal]
  - Multiple organ dysfunction syndrome [Fatal]
  - Loss of consciousness [Fatal]

NARRATIVE: CASE EVENT DATE: 2018
